FAERS Safety Report 23128973 (Version 1)
Quarter: 2023Q4

REPORT INFORMATION
  Report Type: Report from Study
  Country: US (occurrence: None)
  Receive Date: 20231031
  Receipt Date: 20231031
  Transmission Date: 20240110
  Serious: Yes (Life-Threatening, Hospitalization, Other)
  Sender: FDA-Public Use
  Company Number: 2023A244577

PATIENT
  Sex: Female

DRUGS (1)
  1. SAPHNELO [Suspect]
     Active Substance: ANIFROLUMAB-FNIA
     Indication: Central nervous system lupus
     Route: 042

REACTIONS (9)
  - Heart rate increased [Unknown]
  - Pyrexia [Unknown]
  - Carditis [Unknown]
  - Pain [Unknown]
  - Illness [Unknown]
  - Systemic lupus erythematosus [Unknown]
  - Nephritis [Unknown]
  - Blood urine present [Unknown]
  - Erythema [Unknown]
